FAERS Safety Report 18632386 (Version 1)
Quarter: 2020Q4

REPORT INFORMATION
  Report Type: Spontaneous
  Country: UA (occurrence: UA)
  Receive Date: 20201218
  Receipt Date: 20201218
  Transmission Date: 20210114
  Serious: Yes (Death)
  Sender: FDA-Public Use
  Company Number: UA-ROCHE-2734004

PATIENT
  Age: 36 Year
  Sex: Female

DRUGS (1)
  1. ACTEMRA [Suspect]
     Active Substance: TOCILIZUMAB
     Indication: COVID-19
     Route: 065

REACTIONS (5)
  - Intentional product use issue [Unknown]
  - Death [Fatal]
  - Maternal exposure during pregnancy [Unknown]
  - Premature labour [Recovered/Resolved]
  - Off label use [Unknown]
